FAERS Safety Report 6358538-6 (Version None)
Quarter: 2009Q3

REPORT INFORMATION
  Report Type: 
  Country: None (occurrence: None)
  Receive Date: 20090916
  Receipt Date: 20090911
  Transmission Date: 20100115
  Serious: Yes (Other)
  Sender: FDA-Public Use
  Company Number: FR-BAXTER-2009BH013985

PATIENT
  Age: 8 Year
  Sex: Male

DRUGS (3)
  1. CYCLOPHOSPHAMIDE [Suspect]
     Indication: METASTASES TO MENINGES
     Route: 048
  2. ETOPOSIDE [Suspect]
     Indication: METASTASES TO MENINGES
     Route: 048
  3. CELECOXIB [Suspect]
     Indication: METASTASES TO MENINGES
     Route: 048

REACTIONS (1)
  - SUBDURAL HAEMATOMA [None]
